FAERS Safety Report 17492992 (Version 2)
Quarter: 2020Q1

REPORT INFORMATION
  Report Type: Spontaneous
  Country: US (occurrence: US)
  Receive Date: 20200303
  Receipt Date: 20200312
  Transmission Date: 20200409
  Serious: Yes (Other)
  Sender: FDA-Public Use
  Company Number: US-JNJFOC-20200234189

PATIENT
  Age: 80 Year
  Sex: Male
  Weight: 105.33 kg

DRUGS (3)
  1. XARELTO [Suspect]
     Active Substance: RIVAROXABAN
     Route: 048
     Dates: start: 20200221
  2. XARELTO [Suspect]
     Active Substance: RIVAROXABAN
     Indication: THROMBOSIS
     Route: 048
     Dates: start: 201906, end: 201912
  3. XARELTO [Suspect]
     Active Substance: RIVAROXABAN
     Indication: THROMBOSIS
     Route: 048
     Dates: start: 20200217

REACTIONS (12)
  - Deep vein thrombosis [Not Recovered/Not Resolved]
  - Pain in extremity [Unknown]
  - Product label issue [Unknown]
  - Insomnia [Recovered/Resolved]
  - Urine output increased [Unknown]
  - Visual impairment [Not Recovered/Not Resolved]
  - Peripheral swelling [Not Recovered/Not Resolved]
  - Body height decreased [Unknown]
  - Abnormal loss of weight [Unknown]
  - Incorrect dose administered [Unknown]
  - Off label use [Unknown]
  - Oligodipsia [Unknown]

NARRATIVE: CASE EVENT DATE: 2019
